FAERS Safety Report 22187743 (Version 2)
Quarter: 2023Q2

REPORT INFORMATION
  Report Type: Spontaneous
  Country: US (occurrence: US)
  Receive Date: 20230408
  Receipt Date: 20230408
  Transmission Date: 20230721
  Serious: No
  Sender: FDA-Public Use
  Company Number: US-ABBVIE-4721085

PATIENT
  Age: 83 Year
  Sex: Male

DRUGS (1)
  1. CREON [Suspect]
     Active Substance: PANCRELIPASE AMYLASE\PANCRELIPASE LIPASE\PANCRELIPASE PROTEASE
     Indication: Pancreatic failure
     Dosage: FORM STRENGTH: 36000 UNIT ?2 CAPSULES EACH MEAL, 1 CAP EACH SNACK
     Route: 048

REACTIONS (3)
  - Dermatitis allergic [Unknown]
  - Type 1 diabetes mellitus [Unknown]
  - Food allergy [Unknown]
